FAERS Safety Report 8807013 (Version 1)
Quarter: 2012Q4

REPORT INFORMATION
  Report Type: 
  Country: US (occurrence: US)
  Receive Date: 20120925
  Receipt Date: 20120925
  Transmission Date: 20130627
  Serious: Yes (Hospitalization)
  Sender: FDA-Public Use
  Company Number: US-ROCHE-1127082

PATIENT
  Sex: Female

DRUGS (4)
  1. AVASTIN [Suspect]
     Indication: BREAST CANCER FEMALE
     Route: 065
  2. ADRIAMYCIN [Concomitant]
  3. TAXOTERE [Concomitant]
  4. CYTOXAN [Concomitant]

REACTIONS (1)
  - Disease progression [Unknown]
